FAERS Safety Report 5784248-X (Version None)
Quarter: 2008Q2

REPORT INFORMATION
  Report Type: 
  Country: None (occurrence: None)
  Receive Date: 20080619
  Receipt Date: 20080619
  Transmission Date: 20081010
  Serious: Yes (Other)
  Sender: FDA-Public Use
  Company Number: None

PATIENT
  Sex: Male
  Weight: 15.78 kg

DRUGS (1)
  1. PROPOFOL [Suspect]
     Indication: SEDATION
     Dosage: IV/ONE TIME
     Route: 042
     Dates: start: 20080606, end: 20080606

REACTIONS (4)
  - BACTERIAL SEPSIS [None]
  - CHILLS [None]
  - PAIN [None]
  - PYREXIA [None]
